FAERS Safety Report 10305335 (Version 1)
Quarter: 2014Q3

REPORT INFORMATION
  Report Type: Spontaneous
  Country: US (occurrence: None)
  Receive Date: 20140711
  Receipt Date: 20140711
  Transmission Date: 20150326
  Serious: Yes (Hospitalization)
  Sender: FDA-Public Use
  Company Number: None

PATIENT
  Age: 56 Year
  Sex: Female
  Weight: 58.1 kg

DRUGS (2)
  1. GEMCITABINE HYDROCHLORIDE. [Suspect]
     Active Substance: GEMCITABINE HYDROCHLORIDE
  2. CISPLATIN. [Suspect]
     Active Substance: CISPLATIN

REACTIONS (12)
  - Asthenia [None]
  - Dysuria [None]
  - Failure to thrive [None]
  - Hypophagia [None]
  - Urinary tract infection [None]
  - Hypomagnesaemia [None]
  - Pyuria [None]
  - Decreased appetite [None]
  - Malnutrition [None]
  - Pain [None]
  - Vulvovaginal pain [None]
  - Weight decreased [None]

NARRATIVE: CASE EVENT DATE: 20140626
